FAERS Safety Report 6327266-5 (Version None)
Quarter: 2009Q3

REPORT INFORMATION
  Report Type: 
  Country: None (occurrence: None)
  Receive Date: 20090825
  Receipt Date: 20090824
  Transmission Date: 20100115
  Serious: Yes (Hospitalization)
  Sender: FDA-Public Use
  Company Number: US-BAYER-200913291BCC

PATIENT
  Age: 63 Year
  Sex: Male

DRUGS (5)
  1. ASPIRIN [Suspect]
     Indication: THROMBOSIS PROPHYLAXIS
     Route: 065
     Dates: start: 20070101, end: 20090713
  2. PLAVIX [Suspect]
     Indication: THROMBOSIS PROPHYLAXIS
     Dosage: TOTAL DAILY DOSE: 75 MG  UNIT DOSE: 75 MG
     Route: 048
     Dates: start: 20070101, end: 20090713
  3. PLAVIX [Suspect]
     Route: 048
     Dates: start: 20090101, end: 20090101
  4. PRILOSEC [Concomitant]
     Indication: GASTRIC DISORDER
     Route: 065
  5. UNKNOWN MEDICATION [Concomitant]
     Indication: INFECTION
     Route: 065
     Dates: start: 20090801

REACTIONS (2)
  - BLOOD URINE PRESENT [None]
  - HAEMORRHAGE URINARY TRACT [None]
